FAERS Safety Report 9665690 (Version 2)
Quarter: 2014Q1

REPORT INFORMATION
  Report Type: Spontaneous
  Country: GB (occurrence: GB)
  Receive Date: 20131104
  Receipt Date: 20140219
  Transmission Date: 20141002
  Serious: Yes (Other)
  Sender: FDA-Public Use
  Company Number: GB-JNJFOC-20131017604

PATIENT
  Age: 71 Year
  Sex: Female
  Weight: 76 kg

DRUGS (8)
  1. STELARA [Suspect]
     Indication: PSORIASIS
     Route: 058
     Dates: start: 20110902
  2. THYROXINE [Concomitant]
     Indication: HYPOTHYROIDISM
     Route: 048
  3. TILDIEM [Concomitant]
     Indication: HYPERTENSION
     Route: 048
  4. ASPIRIN [Concomitant]
     Indication: MYOCARDIAL ISCHAEMIA
     Route: 048
  5. LANSOPRAZOLE [Concomitant]
     Indication: GASTROOESOPHAGEAL REFLUX DISEASE
     Route: 048
  6. DOXAZOSIN [Concomitant]
     Indication: HYPERTENSION
     Route: 048
  7. SIMVASTATIN [Concomitant]
     Indication: HYPERCHOLESTEROLAEMIA
     Route: 048
  8. FERROUS SULPHATE [Concomitant]
     Indication: ANAEMIA
     Route: 048

REACTIONS (2)
  - Axonal neuropathy [Not Recovered/Not Resolved]
  - Gait disturbance [Unknown]
